FAERS Safety Report 8407745-7 (Version None)
Quarter: 2012Q2

REPORT INFORMATION
  Report Type: 
  Country: None (occurrence: None)
  Receive Date: 20120604
  Receipt Date: 20120529
  Transmission Date: 20120825
  Serious: Yes (Hospitalization, Congenital Anomaly)
  Sender: FDA-Public Use
  Company Number: US-GLAXOSMITHKLINE-A0977190A

PATIENT
  Sex: Male
  Weight: 3.4 kg

DRUGS (5)
  1. INSULIN [Concomitant]
  2. MULTI-VITAMINS [Concomitant]
  3. ATENOLOL [Concomitant]
  4. CELESTONE [Concomitant]
  5. PAXIL [Suspect]
     Indication: DEPRESSION
     Route: 064

REACTIONS (3)
  - VENTRICULAR SEPTAL DEFECT [None]
  - TALIPES [None]
  - FOETAL EXPOSURE DURING PREGNANCY [None]
